FAERS Safety Report 11566875 (Version 1)
Quarter: 2015Q3

REPORT INFORMATION
  Report Type: Report from Study
  Country: BE (occurrence: BE)
  Receive Date: 20150929
  Receipt Date: 20150929
  Transmission Date: 20151125
  Serious: Yes (Death, Hospitalization, Disabling)
  Sender: FDA-Public Use
  Company Number: BE-ROCHE-1638768

PATIENT
  Age: 80 Year
  Sex: Female
  Weight: 73 kg

DRUGS (7)
  1. SPIRIVA [Concomitant]
     Active Substance: TIOTROPIUM BROMIDE MONOHYDRATE
  2. OMALIZUMAB [Suspect]
     Active Substance: OMALIZUMAB
     Indication: ASTHMA
     Route: 058
     Dates: start: 20120221
  3. LIPITOR [Concomitant]
     Active Substance: ATORVASTATIN CALCIUM
  4. APROVEL [Concomitant]
     Active Substance: IRBESARTAN
  5. SYMBICORT [Concomitant]
     Active Substance: BUDESONIDE\FORMOTEROL FUMARATE DIHYDRATE
  6. EMCONCOR [Concomitant]
     Active Substance: BISOPROLOL FUMARATE
  7. DICOUMAROL [Concomitant]

REACTIONS (10)
  - Cardiac failure [Recovered/Resolved]
  - Urinary tract infection [Unknown]
  - Asthma [Fatal]
  - Parotid gland enlargement [Recovered/Resolved]
  - Cervical spinal stenosis [Unknown]
  - Peripheral venous disease [Recovered/Resolved]
  - Hypercapnia [Fatal]
  - Glucose tolerance impaired [Unknown]
  - Spinal compression fracture [Unknown]
  - Hepatic steatosis [Unknown]

NARRATIVE: CASE EVENT DATE: 20130411
